FAERS Safety Report 9022101 (Version 1)
Quarter: 2013Q1

REPORT INFORMATION
  Report Type: Spontaneous
  Country: RS (occurrence: RS)
  Receive Date: 20130118
  Receipt Date: 20130118
  Transmission Date: 20140127
  Serious: Yes (Hospitalization)
  Sender: FDA-Public Use
  Company Number: RS-GLAXOSMITHKLINE-B0860606A

PATIENT
  Age: 7 None
  Sex: Female
  Weight: 22.4 kg

DRUGS (1)
  1. LAMICTAL [Suspect]
     Indication: EPILEPSY
     Dosage: 25MG UNKNOWN
     Route: 048

REACTIONS (5)
  - Lymphadenopathy [Recovering/Resolving]
  - Splenomegaly [Recovering/Resolving]
  - Pyrexia [Recovering/Resolving]
  - Rash [Recovering/Resolving]
  - Pruritus [Recovering/Resolving]
